FAERS Safety Report 9941225 (Version 1)
Quarter: 2014Q1

REPORT INFORMATION
  Report Type: Report from Study
  Country: US (occurrence: US)
  Receive Date: 20140303
  Receipt Date: 20140303
  Transmission Date: 20141002
  Serious: No
  Sender: FDA-Public Use
  Company Number: US-ABBVIE-13P-163-1042081-00

PATIENT
  Age: 63 Year
  Sex: Male

DRUGS (6)
  1. HUMIRA [Suspect]
     Indication: RHEUMATOID ARTHRITIS
     Route: 058
     Dates: start: 201210
  2. VITAMIN D [Concomitant]
     Indication: VITAMIN D DEFICIENCY
  3. PREDNISONE [Concomitant]
     Indication: POLYMYALGIA RHEUMATICA
  4. PREDNISONE [Concomitant]
     Indication: RHEUMATOID ARTHRITIS
  5. GENERIC PLAVIX [Concomitant]
     Indication: STENT PLACEMENT
  6. SULFONAMIDE [Concomitant]
     Indication: RHEUMATOID ARTHRITIS
     Dosage: DAILY

REACTIONS (3)
  - Rash macular [Not Recovered/Not Resolved]
  - Blood pressure increased [Not Recovered/Not Resolved]
  - Nerve compression [Not Recovered/Not Resolved]
